FAERS Safety Report 7834116 (Version 4)
Quarter: 2013Q1

REPORT INFORMATION
  Report Type: Report from Study
  Country: GR (occurrence: GR)
  Receive Date: 20110228
  Receipt Date: 20130301
  Transmission Date: 20140127
  Serious: Yes (Death, Hospitalization)
  Sender: FDA-Public Use
  Company Number: GR-BRISTOL-MYERS SQUIBB COMPANY-15566128

PATIENT
  Age: 67 Year
  Sex: Male
  Weight: 68 kg

DRUGS (3)
  1. CISPLATIN [Suspect]
     Indication: NON-SMALL CELL LUNG CANCER
     Dosage: LAST INF ON 21DEC2010?NO.OF INF:6; ON 01FEB2011 DRUG HELD.
     Dates: start: 20100825
  2. NECITUMUMAB [Suspect]
     Indication: NON-SMALL CELL LUNG CANCER
     Dosage: ON 01FEB2011 DRUG HELD.
     Dates: start: 20100825, end: 20110118
  3. ALIMTA [Suspect]
     Indication: NON-SMALL CELL LUNG CANCER
     Dosage: LAST RECEIVED ON 21DEC2010?NO OF INF:6; ON 01FEB2011 DRUG HELD.
     Dates: start: 20100825

REACTIONS (1)
  - Acute hepatitis B [Fatal]
